FAERS Safety Report 8165304 (Version 3)
Quarter: 2014Q2

REPORT INFORMATION
  Report Type: Spontaneous
  Country: US (occurrence: US)
  Receive Date: 20111003
  Receipt Date: 20140421
  Transmission Date: 20141212
  Serious: Yes (Hospitalization)
  Sender: FDA-Public Use
  Company Number: US-US-EMD SERONO, INC.-7085418

PATIENT
  Age: 59 Year
  Sex: Male

DRUGS (12)
  1. REBIF [Suspect]
     Indication: MULTIPLE SCLEROSIS
     Route: 058
     Dates: start: 20070917
  2. CYMBALTA [Concomitant]
     Indication: ASTHENIA
  3. CYMBALTA [Concomitant]
     Indication: APATHY
  4. CYMBALTA [Concomitant]
     Indication: DEPRESSION
  5. ATIVAN [Concomitant]
     Indication: PRODUCT USED FOR UNKNOWN INDICATION
  6. METFORMIN                          /00082702/ [Concomitant]
     Indication: DIABETES MELLITUS
  7. NEURONTIN [Concomitant]
     Indication: PARAESTHESIA
  8. ADDERALL [Concomitant]
     Indication: DISTURBANCE IN ATTENTION
  9. ADDERALL [Concomitant]
     Indication: NARCOLEPSY
  10. VOLTAREN                           /00372301/ [Concomitant]
     Indication: PRODUCT USED FOR UNKNOWN INDICATION
  11. PROZAC [Concomitant]
     Indication: DEPRESSION
  12. PROZAC [Concomitant]
     Indication: ANXIETY

REACTIONS (3)
  - Chest pain [Recovered/Resolved]
  - Pain [Not Recovered/Not Resolved]
  - Injection site erythema [Not Recovered/Not Resolved]
